FAERS Safety Report 18958265 (Version 2)
Quarter: 2021Q1

REPORT INFORMATION
  Report Type: Report from Study
  Country: CO (occurrence: CO)
  Receive Date: 20210302
  Receipt Date: 20210320
  Transmission Date: 20210420
  Serious: Yes (Other)
  Sender: FDA-Public Use
  Company Number: NVSC2021CO044311

PATIENT
  Age: 62 Year
  Sex: Female

DRUGS (2)
  1. COSENTYX [Suspect]
     Active Substance: SECUKINUMAB
     Indication: PSORIASIS
     Dosage: 300 MG, QMO
     Route: 058
     Dates: start: 20190326, end: 202011
  2. LOSARTAN. [Suspect]
     Active Substance: LOSARTAN
     Indication: HYPERTENSION
     Dosage: UNK, Q24H (STARTED APPROX. 3 YEARS AGO)
     Route: 048

REACTIONS (3)
  - Chest discomfort [Unknown]
  - Fatigue [Unknown]
  - Cardiac failure [Unknown]

NARRATIVE: CASE EVENT DATE: 2020
